FAERS Safety Report 16543871 (Version 1)
Quarter: 2019Q3

REPORT INFORMATION
  Report Type: Report from Study
  Country: US (occurrence: US)
  Receive Date: 20190709
  Receipt Date: 20190709
  Transmission Date: 20191004
  Serious: Yes (Hospitalization, Other)
  Sender: FDA-Public Use
  Company Number: US-BRISTOL-MYERS SQUIBB COMPANY-BMS-2019-066386

PATIENT
  Age: 77 Year
  Sex: Male
  Weight: 71.7 kg

DRUGS (15)
  1. VITAMIN D3 [Concomitant]
     Active Substance: CHOLECALCIFEROL
     Indication: PRODUCT USED FOR UNKNOWN INDICATION
     Dosage: 1000 OTHER, UNITS
     Route: 048
     Dates: start: 2004
  2. FLOMAX [MORNIFLUMATE] [Concomitant]
     Active Substance: MORNIFLUMATE
     Indication: PRODUCT USED FOR UNKNOWN INDICATION
     Dosage: 0.8 MILLIGRAM, QD
     Route: 048
     Dates: start: 2013
  3. NIVOLUMAB [Suspect]
     Active Substance: NIVOLUMAB
     Indication: RENAL CELL CARCINOMA
     Dosage: UNK
     Route: 065
  4. AXITINIB [Suspect]
     Active Substance: AXITINIB
     Indication: RENAL CELL CARCINOMA
     Dosage: UNK
     Route: 065
  5. CISPLATIN. [Concomitant]
     Active Substance: CISPLATIN
     Indication: BLADDER CANCER
     Dosage: 70 MILLIGRAM/SQ. METER
     Route: 042
     Dates: start: 20190421
  6. ATORVASTATIN [Concomitant]
     Active Substance: ATORVASTATIN
     Indication: PRODUCT USED FOR UNKNOWN INDICATION
     Dosage: 10 MILLIGRAM, QD
     Route: 048
     Dates: start: 2004
  7. LEXAPRO [Concomitant]
     Active Substance: ESCITALOPRAM OXALATE
     Indication: PRODUCT USED FOR UNKNOWN INDICATION
     Dosage: 10 MILLIGRAM, QD
     Route: 048
     Dates: start: 2004
  8. VINBLASTINE [Concomitant]
     Active Substance: VINBLASTINE
     Indication: BLADDER CANCER
     Dosage: 3 MILLIGRAM/SQ. METER
     Route: 042
     Dates: start: 20190421
  9. NEULASTA [Concomitant]
     Active Substance: PEGFILGRASTIM
     Indication: BLADDER CANCER
     Dosage: 6 MILLIGRAM
     Route: 058
     Dates: start: 20190421
  10. COMPAZINE [PROCHLORPERAZINE EDISYLATE] [Concomitant]
     Active Substance: PROCHLORPERAZINE EDISYLATE
     Indication: PRODUCT USED FOR UNKNOWN INDICATION
     Dosage: 10 MILLIGRAM, Q6H
     Route: 048
     Dates: start: 20190424
  11. MULTIVITAMIN (16) [Concomitant]
     Active Substance: VITAMINS
     Indication: PRODUCT USED FOR UNKNOWN INDICATION
     Dosage: 1 OTHER, CAPSULE, QD
     Route: 048
     Dates: start: 2018
  12. METHOTREXATE. [Concomitant]
     Active Substance: METHOTREXATE
     Indication: BLADDER CANCER
     Dosage: 30 MILLIGRAM/SQ. METER
     Route: 042
     Dates: start: 20190421
  13. DOXORUBICIN [Concomitant]
     Active Substance: DOXORUBICIN
     Indication: BLADDER CANCER
     Dosage: 30 MILLIGRAM/SQ. METER
     Route: 042
     Dates: start: 20190421
  14. LUCENTIS [Concomitant]
     Active Substance: RANIBIZUMAB
     Indication: PRODUCT USED FOR UNKNOWN INDICATION
     Dosage: 0.3 MILLIGRAM, EVERY 6-8 WEEKS
     Route: 047
     Dates: start: 2018
  15. TYLENOL A [Concomitant]
     Active Substance: ACETAMINOPHEN
     Indication: PRODUCT USED FOR UNKNOWN INDICATION
     Dosage: 1000 MILLIGRAM, QD
     Route: 048
     Dates: start: 2015

REACTIONS (4)
  - Haematuria [Unknown]
  - Abdominal pain [Unknown]
  - Urinary retention [Unknown]
  - Nausea [Unknown]

NARRATIVE: CASE EVENT DATE: 20190606
